FAERS Safety Report 11588362 (Version 1)
Quarter: 2015Q4

REPORT INFORMATION
  Report Type: Spontaneous
  Country: US (occurrence: None)
  Receive Date: 20151001
  Receipt Date: 20151001
  Transmission Date: 20160304
  Serious: No
  Sender: FDA-Public Use
  Company Number: None

PATIENT
  Age: 62 Year
  Sex: Male
  Weight: 97.52 kg

DRUGS (12)
  1. YOUNGEVITY ULTIMATE EFA PLUS [Concomitant]
  2. GLIMEPIRIDE. [Concomitant]
     Active Substance: GLIMEPIRIDE
  3. ZANTAC [Concomitant]
     Active Substance: RANITIDINE HYDROCHLORIDE
  4. DILTIAZEM [Concomitant]
     Active Substance: DILTIAZEM
  5. METFORMIN HCL [Concomitant]
     Active Substance: METFORMIN HYDROCHLORIDE
  6. HYDRALAZINE [Concomitant]
     Active Substance: HYDRALAZINE HYDROCHLORIDE
  7. QUINAPRIL [Concomitant]
     Active Substance: QUINAPRIL\QUINAPRIL HYDROCHLORIDE
  8. YOUNGEVITY BEYOND OSTEO-FX [Concomitant]
  9. BEYOND TANGY TANGERINE [Concomitant]
  10. VIAGRA [Suspect]
     Active Substance: SILDENAFIL CITRATE
     Indication: ERECTILE DYSFUNCTION
     Dosage: 4 PILLS IN PACK ONE PILL A MONTH AT ONE HALF
     Route: 048
  11. COMPLETE MULTI-VITAMIN MINERAL COMPLEX [Concomitant]
  12. ZOCOR [Concomitant]
     Active Substance: SIMVASTATIN

REACTIONS (4)
  - Spontaneous penile erection [None]
  - Penile curvature [None]
  - Sleep sex [None]
  - Penile pain [None]

NARRATIVE: CASE EVENT DATE: 201503
